FAERS Safety Report 14007958 (Version 1)
Quarter: 2017Q3

REPORT INFORMATION
  Report Type: Spontaneous
  Country: US (occurrence: US)
  Receive Date: 20170925
  Receipt Date: 20170925
  Transmission Date: 20171128
  Serious: No
  Sender: FDA-Public Use
  Company Number: US-GLAXOSMITHKLINE-US2017145415

PATIENT
  Age: 73 Year
  Sex: Male

DRUGS (3)
  1. VOLTAREN DOLO FORTE GEL [Suspect]
     Active Substance: DICLOFENAC DIETHYLAMINE
     Indication: EXOSTOSIS
     Dosage: UNK
     Dates: start: 20170917
  2. VOLTAREN [Suspect]
     Active Substance: DICLOFENAC SODIUM
     Indication: EXOSTOSIS
     Dosage: UNK
     Dates: end: 201708
  3. ELIQUIS [Suspect]
     Active Substance: APIXABAN
     Indication: BLOOD PRESSURE MEASUREMENT
     Dosage: UNK

REACTIONS (5)
  - Labelled drug-drug interaction medication error [Unknown]
  - Product use in unapproved indication [Unknown]
  - Inappropriate schedule of drug administration [Unknown]
  - Off label use [Unknown]
  - Drug effective for unapproved indication [Unknown]
